FAERS Safety Report 5689040-2 (Version None)
Quarter: 2008Q1

REPORT INFORMATION
  Report Type: 
  Country: None (occurrence: None)
  Receive Date: 20080331
  Receipt Date: 20080326
  Transmission Date: 20080703
  Serious: Yes (Other)
  Sender: FDA-Public Use
  Company Number: B0495501A

PATIENT
  Age: 71 Year
  Sex: Female

DRUGS (6)
  1. PAXIL [Suspect]
     Indication: DEPRESSIVE SYMPTOM
     Dosage: 20MG PER DAY
     Route: 048
     Dates: start: 20070614
  2. ASPIRIN [Concomitant]
     Indication: CEREBRAL INFARCTION
     Route: 048
     Dates: start: 20070614
  3. LIPITOR [Concomitant]
     Route: 048
  4. DEPAS [Concomitant]
     Route: 048
  5. NORVASC [Concomitant]
     Route: 048
  6. ZANTAC [Concomitant]
     Indication: GASTRITIS
     Dosage: 150MG PER DAY
     Route: 048
     Dates: start: 20070614

REACTIONS (5)
  - CIRCADIAN RHYTHM SLEEP DISORDER [None]
  - DELIRIUM [None]
  - PORIOMANIA [None]
  - SLEEP PHASE RHYTHM DISTURBANCE [None]
  - SPEECH DISORDER [None]
